FAERS Safety Report 9846824 (Version 2)
Quarter: 2014Q1

REPORT INFORMATION
  Report Type: Spontaneous
  Country: US (occurrence: US)
  Receive Date: 20140127
  Receipt Date: 20140127
  Transmission Date: 20141002
  Serious: Yes (Hospitalization, Disabling, Other)
  Sender: FDA-Public Use
  Company Number: US-009507513-1203USA03502

PATIENT
  Sex: Female

DRUGS (2)
  1. FOSAMAX [Suspect]
     Indication: OSTEOPENIA
     Dosage: 70 MG, UNK
     Route: 048
     Dates: start: 200505, end: 20080208
  2. FOSAMAX [Suspect]
     Indication: OSTEOPENIA
     Dosage: 70 MG, UNK
     Route: 048
     Dates: start: 20080208, end: 201006

REACTIONS (31)
  - Biopsy bone [Unknown]
  - Blood pressure increased [Recovering/Resolving]
  - Electrocardiogram QRS complex prolonged [Recovering/Resolving]
  - Trigeminal neuralgia [Unknown]
  - Skin cancer [Unknown]
  - Tremor [Unknown]
  - Osteonecrosis of jaw [Not Recovered/Not Resolved]
  - Dizziness [Recovering/Resolving]
  - Dizziness [Unknown]
  - Asthenia [Unknown]
  - Dental caries [Unknown]
  - Tooth abscess [Unknown]
  - Tooth infection [Unknown]
  - Blood potassium decreased [Unknown]
  - Chest pain [Unknown]
  - Type V hyperlipidaemia [Unknown]
  - Diabetes mellitus inadequate control [Unknown]
  - Feeling abnormal [Unknown]
  - Myositis [Unknown]
  - Hypertension [Unknown]
  - Aortic valve incompetence [Unknown]
  - Lichen planus [Unknown]
  - Pelvic fracture [Unknown]
  - Mouth haemorrhage [Unknown]
  - Periodontal disease [Unknown]
  - Impaired healing [Unknown]
  - Debridement [Unknown]
  - Contusion [Unknown]
  - Neoplasm skin [Unknown]
  - Malaise [Unknown]
  - Myalgia [Unknown]
